FAERS Safety Report 5495645-4 (Version None)
Quarter: 2007Q4

REPORT INFORMATION
  Report Type: 
  Country: None (occurrence: None)
  Receive Date: 20071025
  Receipt Date: 20070927
  Transmission Date: 20080405
  Serious: No
  Sender: FDA-Public Use
  Company Number: US-JNJFOC-20071000231

PATIENT
  Sex: Female

DRUGS (4)
  1. INVEGA [Suspect]
     Dosage: 3-9 MG IN THE MORNING
  2. INVEGA [Suspect]
     Indication: DRUG THERAPY
     Dosage: TAKEN AT NIGHT
  3. FOCALIN XR [Concomitant]
  4. CLARITIN [Concomitant]

REACTIONS (2)
  - INCREASED APPETITE [None]
  - SOMNOLENCE [None]
